FAERS Safety Report 7690797-X (Version None)
Quarter: 2011Q3

REPORT INFORMATION
  Report Type: 
  Country: None (occurrence: None)
  Receive Date: 20110818
  Receipt Date: 20110815
  Transmission Date: 20111222
  Serious: Yes (Other)
  Sender: FDA-Public Use
  Company Number: US-PFIZER INC-2011187437

PATIENT
  Sex: Male
  Weight: 74.8 kg

DRUGS (3)
  1. CHANTIX [Suspect]
     Indication: SMOKING CESSATION THERAPY
     Dosage: 0.5 MG, 1X/DAY
     Route: 048
     Dates: start: 20110601, end: 20110601
  2. CHANTIX [Suspect]
     Dosage: 0.5 MG, UNK
     Dates: start: 20110601, end: 20110601
  3. LISINOPRIL [Concomitant]
     Indication: HYPERTENSION
     Dosage: 20 MG, UNK

REACTIONS (5)
  - DYSPNOEA [None]
  - MYOCARDIAL INFARCTION [None]
  - THROMBOSIS [None]
  - THYROID MASS [None]
  - MALAISE [None]
